FAERS Safety Report 4956728-8 (Version None)
Quarter: 2006Q1

REPORT INFORMATION
  Report Type: 
  Country: None (occurrence: None)
  Receive Date: 20060329
  Receipt Date: 20060320
  Transmission Date: 20060701
  Serious: Yes (Life-Threatening, Hospitalization)
  Sender: FDA-Public Use
  Company Number: NL-GLAXOSMITHKLINE-B0417467A

PATIENT
  Age: 40 Year
  Sex: Female
  Weight: 92 kg

DRUGS (2)
  1. SALBUTAMOL SULPHATE [Suspect]
     Indication: ASTHMA
     Dosage: 400MCG AS REQUIRED
     Route: 055
     Dates: start: 19990101, end: 20050320
  2. PROZAC [Suspect]
     Indication: DEPRESSION
     Dosage: 20MG PER DAY
     Route: 065
     Dates: start: 20001201, end: 20040606

REACTIONS (7)
  - GALACTORRHOEA [None]
  - HAEMATOMA [None]
  - HYPERGLYCAEMIA [None]
  - HYPERTENSION [None]
  - HYPOGLYCAEMIA [None]
  - LOSS OF LIBIDO [None]
  - PYREXIA [None]
